FAERS Safety Report 17439867 (Version 4)
Quarter: 2022Q1

REPORT INFORMATION
  Report Type: Report from Study
  Country: LB (occurrence: LB)
  Receive Date: 20200220
  Receipt Date: 20220303
  Transmission Date: 20220424
  Serious: Yes (Death, Hospitalization)
  Sender: FDA-Public Use
  Company Number: LB-ABBVIE-20K-093-3284394-00

PATIENT
  Sex: Female
  Weight: 50 kg

DRUGS (11)
  1. HUMIRA [Suspect]
     Active Substance: ADALIMUMAB
     Indication: Crohn^s disease
     Dosage: 160MG LOADING DOSE
     Route: 058
     Dates: start: 20200106, end: 20200106
  2. VASTAREL [Concomitant]
     Active Substance: TRIMETAZIDINE DIHYDROCHLORIDE
     Indication: Product used for unknown indication
     Route: 048
  3. BISOPROLOL FUMARATE [Concomitant]
     Active Substance: BISOPROLOL FUMARATE
     Indication: Product used for unknown indication
     Route: 048
  4. DISGREN [Concomitant]
     Indication: Product used for unknown indication
  5. LASIX [Concomitant]
     Active Substance: FUROSEMIDE
     Indication: Product used for unknown indication
     Route: 048
  6. PERINDOPRIL [Concomitant]
     Active Substance: PERINDOPRIL
     Indication: Product used for unknown indication
     Route: 048
  7. PREDNISONE [Concomitant]
     Active Substance: PREDNISONE
     Indication: Product used for unknown indication
     Dosage: 30MG TO BE TAPERED GRADUALLY
     Route: 048
  8. APO-ACETAZOLAMIDE [Concomitant]
     Indication: Product used for unknown indication
  9. OMEPRAZOLE [Concomitant]
     Active Substance: OMEPRAZOLE
     Indication: Product used for unknown indication
  10. MIMOSA [Concomitant]
     Indication: Product used for unknown indication
  11. GLYBURIDE\METFORMIN HYDROCHLORIDE [Concomitant]
     Active Substance: GLYBURIDE\METFORMIN HYDROCHLORIDE
     Indication: Product used for unknown indication
     Route: 048

REACTIONS (4)
  - General physical health deterioration [Fatal]
  - Intestinal mass [Not Recovered/Not Resolved]
  - Impaired healing [Not Recovered/Not Resolved]
  - Anal abscess [Recovered/Resolved]

NARRATIVE: CASE EVENT DATE: 20200101
